FAERS Safety Report 5935796-0 (Version None)
Quarter: 2008Q4

REPORT INFORMATION
  Report Type: 
  Country: None (occurrence: None)
  Receive Date: 20081030
  Receipt Date: 20081022
  Transmission Date: 20090506
  Serious: Yes (Hospitalization)
  Sender: FDA-Public Use
  Company Number: PHEH2008US09479

PATIENT
  Sex: Female

DRUGS (1)
  1. EXJADE [Suspect]
     Dosage: UNK
     Dates: end: 20081020

REACTIONS (3)
  - JAUNDICE [None]
  - LIVER DISORDER [None]
  - PYREXIA [None]
